FAERS Safety Report 8402480 (Version 12)
Quarter: 2013Q3

REPORT INFORMATION
  Report Type: Spontaneous
  Country: IL (occurrence: IL)
  Receive Date: 20120213
  Receipt Date: 20130718
  Transmission Date: 20140515
  Serious: Yes (Death, Life-Threatening, Hospitalization, Other)
  Sender: FDA-Public Use
  Company Number: IL-SANOFI-AVENTIS-2011SA078958

PATIENT
  Age: 62 Year
  Sex: Male

DRUGS (53)
  1. PLAVIX [Suspect]
     Indication: PRODUCT USED FOR UNKNOWN INDICATION
     Route: 065
     Dates: end: 20110705
  2. PLAVIX [Suspect]
     Indication: PRODUCT USED FOR UNKNOWN INDICATION
     Route: 065
     Dates: start: 20110327
  3. PLAVIX [Suspect]
     Indication: PRODUCT USED FOR UNKNOWN INDICATION
     Route: 065
     Dates: start: 20101222
  4. PLAVIX [Suspect]
     Indication: PRODUCT USED FOR UNKNOWN INDICATION
     Route: 065
     Dates: start: 20111128
  5. SAXAGLIPTIN HYDROCHLORIDE [Concomitant]
     Indication: TYPE 2 DIABETES MELLITUS
     Dates: start: 20101222, end: 20110705
  6. LANTUS [Concomitant]
     Dosage: BEFORE RANDOMIZATION
     Dates: end: 20111121
  7. LANTUS [Concomitant]
     Dosage: DOSE; 20 IU/UNITS
     Dates: start: 20111122
  8. APIDRA [Concomitant]
     Dosage: BEFORE RANDOMIZATION
     Dates: end: 20111121
  9. APIDRA [Concomitant]
     Dosage: DOSE; 30 IU/UNITS
     Dates: start: 20111122
  10. COUMADIN [Concomitant]
     Dates: end: 20110922
  11. ASPIRIN [Concomitant]
     Dates: start: 20110924
  12. TRAMADEX [Concomitant]
     Dates: start: 20120207, end: 20120207
  13. ZINACEF /UNK/ [Concomitant]
     Dates: start: 20110923, end: 20110929
  14. NYSTATIN [Concomitant]
     Dosage: THERAPY END DATE: 16 FEB 2012 DOSE:2 UNIT(S)
     Dates: start: 20120209, end: 20120216
  15. SOLUMEDROL [Concomitant]
     Dosage: THERAPY END DATE: 10 FEB 2012
     Dates: start: 20120208, end: 20120210
  16. OPTALGIN [Concomitant]
     Dosage: THERPAY END DATE: 10 FEB 2012
     Dates: start: 20120202, end: 20120210
  17. CIPRODEX [Concomitant]
     Dates: start: 20111024, end: 20111102
  18. ROCEFIN [Concomitant]
     Dates: start: 20110929, end: 20111006
  19. AMIKACIN [Concomitant]
     Dates: start: 20111021, end: 20111023
  20. RULID [Concomitant]
     Dates: start: 20110922, end: 20111010
  21. ZINNAT [Concomitant]
     Dates: start: 20111007, end: 20111010
  22. OMEPRADEX [Concomitant]
     Dates: start: 20111002
  23. FERROCAL [Concomitant]
     Dates: start: 20111021
  24. BISOPROLOL [Concomitant]
  25. TRITACE [Concomitant]
  26. SIMVASTATIN [Concomitant]
     Dosage: ?FIRST REPORTED ON 22 DECEMBER 2010
     Dates: end: 20110925
  27. SIMVASTATIN [Concomitant]
     Dosage: FIRST REPORTED ON 04 JULY 2011
     Dates: end: 20110925
  28. SIMVASTATIN [Concomitant]
     Dosage: FIRST REPORTED ON 27 MARCH 2011
     Dates: end: 20110925
  29. LIPITOR /UNK/ [Concomitant]
     Dates: start: 20110926
  30. BEZALIP [Concomitant]
     Dates: start: 20110926
  31. AEROVENT [Concomitant]
     Dates: start: 20110929
  32. ANTITHROMBOTIC AGENTS [Concomitant]
     Dosage: ?FIRST REPORTED ON?22 DEC 2010
     Route: 048
     Dates: start: 20110327
  33. ANTITHROMBOTIC AGENTS [Concomitant]
     Dosage: FIRST REPORTED ON 04 JULY 2011
     Route: 048
     Dates: start: 20110704
  34. ANTITHROMBOTIC AGENTS [Concomitant]
     Route: 048
     Dates: start: 20101222
  35. BETA BLOCKING AGENTS [Concomitant]
     Dosage: FIRST REPORTED ON 22 DECEMBER2010
     Dates: start: 20101222
  36. BETA BLOCKING AGENTS [Concomitant]
     Dosage: FIRST REPORTED ON 04 JULY 2011
     Dates: start: 20110327
  37. BETA BLOCKING AGENTS [Concomitant]
     Dosage: FIRST REPORTED ON 27 MARCH 2011
     Dates: start: 20110704
  38. DIURETICS [Concomitant]
     Dosage: FIRST REPORTED ON 22 DECEMBER2010
     Dates: start: 20101222
  39. DIURETICS [Concomitant]
     Dosage: FIRST REPORTED ON 04 JULY 2011
     Dates: start: 20110327
  40. DIURETICS [Concomitant]
     Dosage: FIRST REPORTED ON 27 MARCH 2011
     Dates: start: 20110704
  41. ALDOSTERONE [Concomitant]
     Dosage: FIRST REPORTED ON 22 DECEMBER 2010
     Dates: start: 20101222
  42. ALDOSTERONE [Concomitant]
     Dosage: FIRST REPORTED ON 04 JULY 2011
     Dates: start: 20110327
  43. ALDOSTERONE [Concomitant]
     Dosage: FIRST REPORTED ON 27 MARCH 2011
     Dates: start: 20110704
  44. PLATELET AGGREGATION INHIBITORS [Concomitant]
     Dosage: FIRST REPORTED ON 22 DECEMBER2010
     Dates: start: 20101222
  45. PLATELET AGGREGATION INHIBITORS [Concomitant]
     Dosage: FIRST REPORTED ON 04 JULY 2011
     Dates: start: 20110327
  46. PLATELET AGGREGATION INHIBITORS [Concomitant]
     Dosage: FIRST REPORTED ON 27 MARCH 2011
     Dates: start: 20110704
  47. ALL OTHER THERAPEUTIC PRODUCTS [Concomitant]
     Dosage: ?FIRST REPORTED ON 22 DECEMBER 2010
     Dates: start: 20111222
  48. ACE INHIBITOR NOS [Concomitant]
     Dosage: ?FIRST REPORTED ON 22 DECEMBER 2010
     Dates: start: 20111222
  49. ACE INHIBITOR NOS [Concomitant]
     Dosage: FIRST REPORTED ON 04 JULY 2011
     Dates: start: 20110704
  50. ACE INHIBITOR NOS [Concomitant]
     Dates: start: 20110327
  51. HMG COA REDUCTASE INHIBITORS [Concomitant]
     Dosage: ?FIRST REPORTED ON 22 DECEMBER 2010
     Dates: start: 20101222
  52. HMG COA REDUCTASE INHIBITORS [Concomitant]
     Dates: start: 20110704
  53. HMG COA REDUCTASE INHIBITORS [Concomitant]
     Dates: start: 20110327

REACTIONS (19)
  - Death [Fatal]
  - Acute respiratory failure [Recovered/Resolved]
  - Pneumonia [Recovered/Resolved]
  - Pyrexia [Recovered/Resolved]
  - Haemoptysis [Recovered/Resolved]
  - Renal failure [Recovered/Resolved]
  - Blood urea increased [Unknown]
  - Cataract [Recovered/Resolved]
  - Granulomatosis with polyangiitis [Recovered/Resolved]
  - Myalgia [Recovered/Resolved]
  - Cough [Recovered/Resolved]
  - Haemoptysis [Recovered/Resolved]
  - Pseudomonal sepsis [Unknown]
  - Cardiac failure congestive [Unknown]
  - Dyspnoea [Recovered/Resolved]
  - Gastrointestinal haemorrhage [Recovered/Resolved]
  - Melaena [Recovered/Resolved]
  - Haemoglobin decreased [Recovered/Resolved]
  - Anaemia [Recovered/Resolved]
